FAERS Safety Report 18015358 (Version 1)
Quarter: 2020Q3

REPORT INFORMATION
  Report Type: Spontaneous
  Country: US (occurrence: US)
  Receive Date: 20200713
  Receipt Date: 20200713
  Transmission Date: 20201103
  Serious: No
  Sender: FDA-Public Use
  Company Number: US-FOUNDATIONCONSUMERHC-2020-US-010980

PATIENT
  Age: 21 Year
  Sex: Female
  Weight: 85.73 kg

DRUGS (2)
  1. AVO FOR MENTRUATION [DEVICE] [Suspect]
     Active Substance: DEVICE
     Dosage: UNK
     Route: 065
  2. PLAN B ONE?STEP [Suspect]
     Active Substance: LEVONORGESTREL
     Indication: POST COITAL CONTRACEPTION
     Dosage: 1.5MG TABLET X 2
     Route: 048
     Dates: start: 2014, end: 20200417

REACTIONS (6)
  - Weight decreased [Not Recovered/Not Resolved]
  - Vaginal haemorrhage [Not Recovered/Not Resolved]
  - Decreased appetite [Recovered/Resolved]
  - Menorrhagia [Recovered/Resolved]
  - Mood swings [Recovered/Resolved]
  - Emotional disorder [Recovered/Resolved]

NARRATIVE: CASE EVENT DATE: 20200501
